FAERS Safety Report 4714263-6 (Version None)
Quarter: 2005Q2

REPORT INFORMATION
  Report Type: 
  Country: None (occurrence: None)
  Receive Date: 20050630
  Receipt Date: 20040825
  Transmission Date: 20051028
  Serious: Yes (Hospitalization)
  Sender: FDA-Public Use
  Company Number: 378961

PATIENT
  Age: 21 Year
  Sex: Female

DRUGS (3)
  1. KLONOPIN [Suspect]
     Indication: ANXIETY
     Dosage: 0.5 MG DAILY ORAL
     Route: 048
  2. KLONOPIN [Suspect]
     Indication: DEPRESSION
     Dosage: 0.5 MG DAILY ORAL
     Route: 048
  3. PROVENTIL [Concomitant]

REACTIONS (2)
  - DRUG WITHDRAWAL SYNDROME [None]
  - HALLUCINATION [None]
